FAERS Safety Report 22585047 (Version 2)
Quarter: 2023Q2

REPORT INFORMATION
  Report Type: Spontaneous
  Country: US (occurrence: US)
  Receive Date: 20230609
  Receipt Date: 20230617
  Transmission Date: 20230722
  Serious: No
  Sender: FDA-Public Use
  Company Number: US-SA-SAC20230609000384

PATIENT
  Age: 64 Year
  Sex: Female

DRUGS (1)
  1. KEVZARA [Suspect]
     Active Substance: SARILUMAB
     Indication: Polymyalgia rheumatica
     Dosage: 200 MG, OTHER
     Route: 058
     Dates: start: 20230531

REACTIONS (2)
  - Blood glucose increased [Unknown]
  - Haematuria [Unknown]

NARRATIVE: CASE EVENT DATE: 20230605
